FAERS Safety Report 6528172-3 (Version None)
Quarter: 2010Q1

REPORT INFORMATION
  Report Type: 
  Country: None (occurrence: None)
  Receive Date: 20100105
  Receipt Date: 20100105
  Transmission Date: 20100710
  Serious: Yes (Hospitalization, Other)
  Sender: FDA-Public Use
  Company Number: None

PATIENT
  Age: 56 Year
  Sex: Female
  Weight: 90.7194 kg

DRUGS (2)
  1. LEVOFLOXACIN [Suspect]
     Indication: STAPHYLOCOCCAL INFECTION
     Dosage: 100 ML -6 DOSES- 2X DAY IV DRIP
     Route: 041
     Dates: start: 20091227, end: 20091230
  2. LEVOFLOXACIN [Suspect]
     Dosage: 1 PILL 3X DAY PO
     Route: 048
     Dates: start: 20091230, end: 20091231

REACTIONS (3)
  - ARTHRALGIA [None]
  - PAIN IN EXTREMITY [None]
  - POOR PERIPHERAL CIRCULATION [None]
